FAERS Safety Report 18533786 (Version 2)
Quarter: 2021Q1

REPORT INFORMATION
  Report Type: Report from Study
  Country: CO (occurrence: CO)
  Receive Date: 20201123
  Receipt Date: 20210101
  Transmission Date: 20210419
  Serious: Yes (Other)
  Sender: FDA-Public Use
  Company Number: NVSC2020CO305743

PATIENT
  Age: 49 Year
  Sex: Female
  Weight: 68.5 kg

DRUGS (1)
  1. TASIGNA [Suspect]
     Active Substance: NILOTINIB
     Indication: CHRONIC MYELOID LEUKAEMIA
     Dosage: 400 MG, Q12H
     Route: 048
     Dates: start: 201403

REACTIONS (7)
  - Ovarian cancer [Recovered/Resolved]
  - Rosacea [Unknown]
  - Piloerection [Not Recovered/Not Resolved]
  - Dry skin [Recovering/Resolving]
  - Rash [Unknown]
  - Constipation [Recovering/Resolving]
  - Second primary malignancy [Recovered/Resolved]

NARRATIVE: CASE EVENT DATE: 20160705
